FAERS Safety Report 9385721 (Version 2)
Quarter: 2013Q3

REPORT INFORMATION
  Report Type: Spontaneous
  Country: DE (occurrence: DE)
  Receive Date: 20130705
  Receipt Date: 20130730
  Transmission Date: 20140515
  Serious: Yes (Hospitalization)
  Sender: FDA-Public Use
  Company Number: DE-B.I. PHARMACEUTICALS,INC./RIDGEFIELD-2013-DE-01753DE

PATIENT
  Age: 79 Year
  Sex: Male
  Weight: 120 kg

DRUGS (7)
  1. PRADAXA [Suspect]
     Indication: ATRIAL FIBRILLATION
     Dosage: 300 MG
     Route: 048
     Dates: start: 20130322
  2. DELIX [Concomitant]
     Dosage: 7.5 MG
  3. ZYLORIC [Concomitant]
     Dosage: 300 MG
  4. PANTOZOL [Concomitant]
     Dosage: 40 MG
  5. FUROSEMID [Concomitant]
     Dosage: 60 MG
  6. AMLODIPIN [Concomitant]
     Indication: HYPERTENSION
     Dosage: 10 MG
  7. L-THYROXIN [Concomitant]
     Indication: HYPOTHYROIDISM
     Dosage: 100 MCG

REACTIONS (1)
  - Transient ischaemic attack [Recovered/Resolved]
